FAERS Safety Report 13627633 (Version 1)
Quarter: 2017Q2

REPORT INFORMATION
  Report Type: Spontaneous
  Country: US (occurrence: US)
  Receive Date: 20170531
  Receipt Date: 20170531
  Transmission Date: 20170830
  Serious: Yes (Other)
  Sender: FDA-Public Use
  Company Number: US-ASTELLAS-1541694

PATIENT
  Sex: Female

DRUGS (12)
  1. PROMETHAZINE [Concomitant]
     Active Substance: PROMETHAZINE\PROMETHAZINE HYDROCHLORIDE
  2. TARCEVA [Suspect]
     Active Substance: ERLOTINIB HYDROCHLORIDE
     Route: 048
     Dates: start: 20160831
  3. HYDRALAZINE [Concomitant]
     Active Substance: HYDRALAZINE HYDROCHLORIDE
  4. DOXYCYCLINE. [Concomitant]
     Active Substance: DOXYCYCLINE
  5. ZANTAC [Concomitant]
     Active Substance: RANITIDINE HYDROCHLORIDE
  6. ALEVE [Concomitant]
     Active Substance: NAPROXEN SODIUM
  7. AMLODIPINE [Concomitant]
     Active Substance: AMLODIPINE BESYLATE
     Route: 065
  8. ZETIA [Concomitant]
     Active Substance: EZETIMIBE
     Route: 065
  9. TARCEVA [Suspect]
     Active Substance: ERLOTINIB HYDROCHLORIDE
     Indication: LUNG NEOPLASM MALIGNANT
     Route: 048
     Dates: start: 20141129
  10. PREVACID [Concomitant]
     Active Substance: LANSOPRAZOLE
     Route: 048
  11. MOTRIN [Concomitant]
     Active Substance: IBUPROFEN
  12. AMOXICILLIN. [Concomitant]
     Active Substance: AMOXICILLIN

REACTIONS (21)
  - Pruritus [Unknown]
  - Madarosis [Unknown]
  - Body temperature increased [Unknown]
  - Growth of eyelashes [Unknown]
  - Weight decreased [Unknown]
  - Dry eye [Unknown]
  - Rhinorrhoea [Unknown]
  - Asthenia [Unknown]
  - Rash macular [Unknown]
  - Skin disorder [Unknown]
  - Eye irritation [Unknown]
  - Sinusitis [Unknown]
  - Sinobronchitis [Recovering/Resolving]
  - Nasal congestion [Unknown]
  - Diarrhoea [Unknown]
  - Flushing [Unknown]
  - Rash [Unknown]
  - Cough [Unknown]
  - Onychoclasis [Not Recovered/Not Resolved]
  - Alopecia [Unknown]
  - Ear discomfort [Unknown]
